FAERS Safety Report 9370669 (Version 1)
Quarter: 2013Q2

REPORT INFORMATION
  Report Type: Spontaneous
  Country: US (occurrence: US)
  Receive Date: 20130626
  Receipt Date: 20130626
  Transmission Date: 20140414
  Serious: Yes (Hospitalization, Other)
  Sender: FDA-Public Use
  Company Number: US-ASTRAZENECA-2013SE47297

PATIENT
  Age: 27848 Day
  Sex: Female

DRUGS (2)
  1. BRILINTA [Suspect]
     Indication: STENT PLACEMENT
     Route: 048
     Dates: start: 20130613, end: 20130617
  2. BRILINTA [Suspect]
     Indication: BLOOD PRESSURE ABNORMAL
     Route: 048
     Dates: start: 20130613, end: 20130617

REACTIONS (5)
  - Dyspnoea [Recovering/Resolving]
  - Dyspnoea [Recovering/Resolving]
  - Dyspnoea [Unknown]
  - Throat tightness [Recovering/Resolving]
  - Insomnia [Unknown]
